FAERS Safety Report 19121134 (Version 1)
Quarter: 2021Q2

REPORT INFORMATION
  Report Type: Spontaneous
  Country: US (occurrence: US)
  Receive Date: 20210412
  Receipt Date: 20210412
  Transmission Date: 20210717
  Serious: Yes (Hospitalization)
  Sender: FDA-Public Use
  Company Number: None

PATIENT
  Age: 82 Year
  Sex: Female
  Weight: 69.4 kg

DRUGS (3)
  1. MACROBID [Suspect]
     Active Substance: NITROFURANTOIN\NITROFURANTOIN MONOHYDRATE
     Indication: URINARY TRACT INFECTION
     Dosage: ?          QUANTITY:1 DF DOSAGE FORM;?
     Route: 048
     Dates: start: 20200117, end: 20200119
  2. CPAP [Concomitant]
     Active Substance: DEVICE
  3. ROUSVASTATIN [Suspect]
     Active Substance: ROSUVASTATIN

REACTIONS (6)
  - Loss of consciousness [None]
  - Asthenia [None]
  - Vomiting [None]
  - Mobility decreased [None]
  - Amnesia [None]
  - Back pain [None]

NARRATIVE: CASE EVENT DATE: 20210117
